FAERS Safety Report 8093091-0 (Version None)
Quarter: 2012Q1

REPORT INFORMATION
  Report Type: 
  Country: None (occurrence: None)
  Receive Date: 20120128
  Receipt Date: 20110920
  Transmission Date: 20120608
  Serious: Yes (Other)
  Sender: FDA-Public Use
  Company Number: US-ABBOTT-11P-163-0848933-00

PATIENT
  Age: 56 Year
  Sex: Female

DRUGS (11)
  1. BUPROPION HCL [Concomitant]
     Indication: PRODUCT USED FOR UNKNOWN INDICATION
     Dosage: 150MG 2 TAB QAM, 1 TAB AT NOON
  2. CYMBALTA [Concomitant]
     Indication: PRODUCT USED FOR UNKNOWN INDICATION
  3. VIIBRYD [Concomitant]
     Indication: PRODUCT USED FOR UNKNOWN INDICATION
     Dosage: DAILY DOSE: 140MG
  4. LYRICA [Concomitant]
     Indication: DEPRESSION
     Dosage: DAILY DOSE: 150MG
  5. FENTANYL [Concomitant]
     Indication: BACK PAIN
     Dosage: 1 50MG PATCH EVERY 72 HOURS
  6. VICODIN [Concomitant]
     Indication: BREAKTHROUGH PAIN
     Dosage: 10/325MG PRN
  7. MULTI-VITAMIN [Concomitant]
     Indication: VITAMIN SUPPLEMENTATION
  8. CALCIUM [Concomitant]
     Indication: MINERAL SUPPLEMENTATION
  9. HUMIRA [Suspect]
     Indication: PSORIASIS
     Dates: start: 20090101
  10. CYMBALTA [Concomitant]
  11. LEVOTHYROXINE SODIUM [Concomitant]
     Indication: HYPOTHYROIDISM

REACTIONS (5)
  - INJECTION SITE HAEMORRHAGE [None]
  - INJECTION SITE HAEMATOMA [None]
  - TOOTH ABSCESS [None]
  - ROTATOR CUFF REPAIR [None]
  - KNEE ARTHROPLASTY [None]
